FAERS Safety Report 14438433 (Version 1)
Quarter: 2018Q1

REPORT INFORMATION
  Report Type: Spontaneous
  Country: US (occurrence: US)
  Receive Date: 20180125
  Receipt Date: 20180125
  Transmission Date: 20180509
  Serious: Yes (Hospitalization)
  Sender: FDA-Public Use
  Company Number: US-BRAINTREE LABORATORIES-180041

PATIENT
  Age: 70 Year
  Sex: Male
  Weight: 106.59 kg

DRUGS (1)
  1. SUPREP BOWEL PREP [Suspect]
     Active Substance: MAGNESIUM SULFATE\POTASSIUM SULFATE\SODIUM SULFATE
     Indication: COLONOSCOPY
     Dosage: 2 X 6 OZ. BOTTLE
     Route: 048

REACTIONS (7)
  - Loss of consciousness [None]
  - Rash [None]
  - Tremor [None]
  - Hyperhidrosis [None]
  - Blood potassium decreased [None]
  - Malaise [None]
  - Chills [None]
